FAERS Safety Report 25982094 (Version 2)
Quarter: 2025Q4

REPORT INFORMATION
  Report Type: Spontaneous
  Country: EU (occurrence: EU)
  Receive Date: 20251031
  Receipt Date: 20251107
  Transmission Date: 20260118
  Serious: Yes (Death, Hospitalization, Other)
  Sender: CELLTRION
  Company Number: EU-ROCHE-10000370581

PATIENT

DRUGS (19)
  1. BEVACIZUMAB [Suspect]
     Active Substance: BEVACIZUMAB
     Indication: Colorectal cancer metastatic
     Dosage: EVERY 1 CYCLE(S)
     Route: 041
     Dates: start: 20250530, end: 20250804
  2. BEVACIZUMAB [Suspect]
     Active Substance: BEVACIZUMAB
     Dosage: 720 MILLIGRAM
     Dates: start: 20250804
  3. ATEZOLIZUMAB [Suspect]
     Active Substance: ATEZOLIZUMAB
     Indication: Colorectal cancer metastatic
     Dosage: EVERY 1CYCLE(S)
     Route: 041
     Dates: start: 20250331, end: 20250804
  4. ATEZOLIZUMAB [Suspect]
     Active Substance: ATEZOLIZUMAB
     Dosage: 1200 MILLIGRAM
     Dates: start: 20250804
  5. OXALIPLATIN [Suspect]
     Active Substance: OXALIPLATIN
     Indication: Colorectal cancer metastatic
     Dosage: EVERY 1CYCLE(S)
     Route: 041
     Dates: start: 20250331, end: 20250804
  6. OXALIPLATIN [Suspect]
     Active Substance: OXALIPLATIN
     Dosage: 280 MILLIGRAM
     Dates: start: 20250804
  7. CAPECITABINE [Suspect]
     Active Substance: CAPECITABINE
     Indication: Colorectal cancer metastatic
     Dosage: EVERY 1 CYCLE
     Route: 065
     Dates: start: 20250401, end: 20250816
  8. CAPECITABINE [Suspect]
     Active Substance: CAPECITABINE
     Dosage: 4300 MILLIGRAM
     Dates: start: 20250816
  9. DEVICE\YTTRIUM Y-90 [Suspect]
     Active Substance: DEVICE\YTTRIUM Y-90
     Indication: Colorectal cancer metastatic
     Dosage: UNK
     Route: 041
     Dates: start: 20250515, end: 20250515
  10. CANDESARTAN [Concomitant]
     Active Substance: CANDESARTAN
     Indication: Hypertension
     Dosage: 16 MG/D
     Dates: start: 20250117
  11. AMLODIPINE [Concomitant]
     Active Substance: AMLODIPINE BESYLATE
     Indication: Hypertension
     Dosage: 5 MG/D,
     Dates: start: 20250117
  12. METFORMIN HYDROCHLORIDE\VILDAGLIPTIN [Concomitant]
     Active Substance: METFORMIN HYDROCHLORIDE\VILDAGLIPTIN
     Indication: Type 2 diabetes mellitus
     Dates: start: 20250117
  13. DAFALGAN [Concomitant]
     Active Substance: ACETAMINOPHEN
     Indication: Pain
     Dosage: 500 MILLIGRAM, AS NECESSARY
     Dates: start: 20250117
  14. TAHOR [Concomitant]
     Active Substance: ATORVASTATIN CALCIUM
     Indication: Hypercholesterolaemia
     Dosage: 20 MG/D
     Dates: start: 20250117
  15. APREPITANT [Concomitant]
     Active Substance: APREPITANT
     Indication: Nausea
     Dosage: 125 MG D2D3 80 MG AT EACH CYCLE
     Dates: start: 20250331
  16. ONDANSETRON [Concomitant]
     Active Substance: ONDANSETRON
     Indication: Nausea
     Dosage: 16 MG/D,
     Dates: start: 20250401
  17. PRIMPERAN [Concomitant]
     Active Substance: METOCLOPRAMIDE HYDROCHLORIDE
     Indication: Nausea
     Dosage: 10 MILLIGRAM, EVERY 8 HOURS
     Dates: start: 20250716
  18. IMODIUM [Concomitant]
     Active Substance: LOPERAMIDE HYDROCHLORIDE
     Indication: Diarrhoea
     Dosage: 2 MILLIGRAM, AS NECESSARY
     Dates: start: 20250716
  19. LANSOPRAZOLE [Concomitant]
     Active Substance: LANSOPRAZOLE
     Indication: Gastrooesophageal reflux disease
     Dosage: 30 MG/D.
     Dates: start: 20250813

REACTIONS (3)
  - General physical health deterioration [Fatal]
  - Pure white cell aplasia [Not Recovered/Not Resolved]
  - Fall [Unknown]

NARRATIVE: CASE EVENT DATE: 20250817
